FAERS Safety Report 14583545 (Version 1)
Quarter: 2018Q1

REPORT INFORMATION
  Report Type: Spontaneous
  Country: US (occurrence: US)
  Receive Date: 20180228
  Receipt Date: 20180228
  Transmission Date: 20180509
  Serious: No
  Sender: FDA-Public Use
  Company Number: None

PATIENT
  Age: 71 Year
  Sex: Female
  Weight: 68.04 kg

DRUGS (2)
  1. KETOROLAC TROMETHAMINE OPHTHALMIC SOLUTION 0.49% 5ML [Suspect]
     Active Substance: KETOROLAC TROMETHAMINE
     Indication: CATARACT OPERATION
     Dosage: STRENGTH - 0.49% 5ML?
     Route: 047
  2. VITAMIN C [Concomitant]
     Active Substance: ASCORBIC ACID

REACTIONS (2)
  - Eye irritation [None]
  - Dry mouth [None]

NARRATIVE: CASE EVENT DATE: 20180211
